FAERS Safety Report 17525035 (Version 6)
Quarter: 2024Q1

REPORT INFORMATION
  Report Type: Spontaneous
  Country: BG (occurrence: BG)
  Receive Date: 20200311
  Receipt Date: 20240307
  Transmission Date: 20240409
  Serious: Yes (Hospitalization)
  Sender: FDA-Public Use
  Company Number: NVSC2020BG066958

PATIENT
  Age: 78 Year
  Sex: Female
  Weight: 59 kg

DRUGS (32)
  1. TYKERB [Suspect]
     Active Substance: LAPATINIB DITOSYLATE
     Indication: Hormone receptor positive breast cancer
     Dosage: 1250 MG, QD
     Route: 048
     Dates: start: 20201231, end: 20210120
  2. TYKERB [Suspect]
     Active Substance: LAPATINIB DITOSYLATE
     Dosage: 1250 MG, QD
     Route: 048
     Dates: start: 20210318, end: 20220405
  3. TYKERB [Suspect]
     Active Substance: LAPATINIB DITOSYLATE
     Dosage: 1250 MG, QD
     Route: 048
     Dates: start: 20210128, end: 20210304
  4. DOCETAXEL [Suspect]
     Active Substance: DOCETAXEL\DOCETAXEL ANHYDROUS
     Indication: HER2 positive breast cancer
     Dosage: 75 MG/M2, QD
     Route: 042
     Dates: start: 20190821, end: 20190821
  5. DOCETAXEL [Suspect]
     Active Substance: DOCETAXEL\DOCETAXEL ANHYDROUS
     Dosage: 75 MG/M2, QD
     Route: 042
     Dates: start: 20190911, end: 20190911
  6. TAXOTERE [Suspect]
     Active Substance: DOCETAXEL
     Indication: HER2 positive breast cancer
     Dosage: 56.25 MG/M2, TIW
     Route: 042
     Dates: start: 20190911, end: 20191228
  7. TAXOTERE [Suspect]
     Active Substance: DOCETAXEL
     Dosage: 75 MG/M2, QD
     Route: 042
     Dates: start: 20190821, end: 20190821
  8. CAPECITABINE [Suspect]
     Active Substance: CAPECITABINE
     Indication: Breast cancer metastatic
     Dosage: 1500 MG
     Route: 048
     Dates: start: 20201231, end: 20210113
  9. PERJETA [Suspect]
     Active Substance: PERTUZUMAB
     Indication: HER2 positive breast cancer
     Dosage: 420 MG, TIW
     Route: 042
     Dates: start: 20190911, end: 20200528
  10. PERJETA [Suspect]
     Active Substance: PERTUZUMAB
     Dosage: 840 MG, QD (MOST RECENT DOSE PRIOR TO THE EVENT: 21/AUG/2019 AND 11/SEP/2019)
     Route: 042
     Dates: start: 20190821, end: 20190821
  11. DENOSUMAB [Suspect]
     Active Substance: DENOSUMAB
     Indication: Breast cancer metastatic
     Dosage: 120 MG, Q4W
     Route: 058
     Dates: start: 20200626
  12. EXEMESTANE [Suspect]
     Active Substance: EXEMESTANE
     Indication: Breast cancer metastatic
     Dosage: 25 MG, QD
     Route: 048
     Dates: start: 20200111, end: 20200625
  13. PERTUZUMAB [Suspect]
     Active Substance: PERTUZUMAB
     Indication: Breast cancer metastatic
     Dosage: 840 MG, QD
     Route: 042
     Dates: start: 20190821, end: 20190821
  14. PERTUZUMAB [Suspect]
     Active Substance: PERTUZUMAB
     Dosage: 840 MG, QD  (MOST RECENT DOSE PRIOR TO THE EVENT: 21 AUG 2019 AND 11 SEP 2019)
     Route: 042
     Dates: start: 20190911, end: 20190911
  15. TRASTUZUMAB [Suspect]
     Active Substance: TRASTUZUMAB
     Indication: Breast cancer metastatic
     Dosage: 600 MG, Q3W
     Route: 058
     Dates: start: 20190821, end: 20200528
  16. ADO-TRASTUZUMAB EMTANSINE [Suspect]
     Active Substance: ADO-TRASTUZUMAB EMTANSINE
     Indication: Breast cancer metastatic
     Dosage: 3.6 MG/KG
     Route: 042
     Dates: start: 20200626, end: 20201123
  17. XELODA [Suspect]
     Active Substance: CAPECITABINE
     Indication: HER2 positive breast cancer
     Dosage: 1300 MG
     Route: 048
     Dates: start: 20210128, end: 20210303
  18. XELODA [Suspect]
     Active Substance: CAPECITABINE
     Dosage: 1000 MG
     Route: 048
     Dates: start: 20210603, end: 20220320
  19. XELODA [Suspect]
     Active Substance: CAPECITABINE
     Dosage: 1500 MG
     Route: 048
     Dates: start: 20201231, end: 20210113
  20. XELODA [Suspect]
     Active Substance: CAPECITABINE
     Dosage: 1300 MG
     Route: 048
     Dates: start: 20210318, end: 20210602
  21. HERCEPTIN [Suspect]
     Active Substance: TRASTUZUMAB
     Indication: HER2 positive breast cancer
     Dosage: 600 MG, TIW
     Route: 058
     Dates: start: 20190821, end: 20200528
  22. KADCYLA [Suspect]
     Active Substance: ADO-TRASTUZUMAB EMTANSINE
     Indication: HER2 positive breast cancer
     Dosage: 3.6 MG/KG, TIW
     Route: 042
     Dates: start: 20200626, end: 20201113
  23. AROMASIN [Suspect]
     Active Substance: EXEMESTANE
     Indication: HER2 positive breast cancer
     Dosage: 25 MG, QD
     Route: 048
     Dates: start: 20200111, end: 20200625
  24. ZOLEDRONIC ACID [Concomitant]
     Active Substance: ZOLEDRONIC ACID
     Indication: Product used for unknown indication
     Dosage: 4 MG, QMO
     Route: 042
     Dates: start: 20190822
  25. BISOPROLOL FUMARATE [Concomitant]
     Active Substance: BISOPROLOL FUMARATE
     Indication: Product used for unknown indication
     Dosage: UNK
     Route: 065
     Dates: start: 20130615
  26. XGEVA [Concomitant]
     Active Substance: DENOSUMAB
     Indication: Product used for unknown indication
     Dosage: 120 MG, Q4W
     Route: 058
     Dates: start: 20200626
  27. FOLIC ACID [Concomitant]
     Active Substance: FOLIC ACID
     Indication: Anaemia
     Dosage: UNK
     Route: 065
  28. FERROUS SULFATE [Concomitant]
     Active Substance: FERROUS SULFATE
     Indication: Anaemia
     Dosage: UNK
     Route: 065
  29. INDEXTOL [Concomitant]
     Indication: Product used for unknown indication
     Dosage: UNK
     Route: 065
  30. ACETAMINOPHEN [Concomitant]
     Active Substance: ACETAMINOPHEN
     Indication: Pyrexia
     Dosage: UNK
     Route: 065
  31. OLIMEL E [Concomitant]
     Active Substance: AMINO ACIDS\DEXTROSE\ELECTROLYTES NOS\SOYBEAN OIL
     Indication: Product used for unknown indication
     Dosage: UNK
     Route: 065
     Dates: start: 20190828, end: 20190828
  32. CEFTRIAXONE [Concomitant]
     Active Substance: CEFTRIAXONE\CEFTRIAXONE SODIUM
     Indication: Product used for unknown indication
     Dosage: UNK
     Route: 065
     Dates: start: 20190828, end: 20190830

REACTIONS (6)
  - Neutropenia [Recovered/Resolved]
  - Blood creatinine increased [Recovered/Resolved]
  - White blood cell count decreased [Recovered/Resolved]
  - Diarrhoea [Recovered/Resolved]
  - Diarrhoea [Recovered/Resolved]
  - Stomatitis [Recovered/Resolved]

NARRATIVE: CASE EVENT DATE: 20190823
